FAERS Safety Report 23297209 (Version 1)
Quarter: 2023Q4

REPORT INFORMATION
  Report Type: Spontaneous
  Country: CA (occurrence: CA)
  Receive Date: 20231214
  Receipt Date: 20231214
  Transmission Date: 20240109
  Serious: Yes (Other)
  Sender: FDA-Public Use
  Company Number: CA-BAYER-2023A178838

PATIENT
  Sex: Female

DRUGS (1)
  1. YASMIN [Suspect]
     Active Substance: DROSPIRENONE\ETHINYL ESTRADIOL
     Indication: Oral contraception
     Dosage: UNK
     Route: 048

REACTIONS (8)
  - Dizziness [None]
  - Nausea [None]
  - Anaemia [None]
  - Ischaemic stroke [None]
  - Retinal artery occlusion [None]
  - Photophobia [None]
  - Blood iron decreased [None]
  - Blindness unilateral [None]
